FAERS Safety Report 24816785 (Version 2)
Quarter: 2025Q1

REPORT INFORMATION
  Report Type: Spontaneous
  Country: FR (occurrence: FR)
  Receive Date: 20250107
  Receipt Date: 20250206
  Transmission Date: 20250409
  Serious: Yes (Hospitalization)
  Sender: JOHNSON AND JOHNSON
  Company Number: None

PATIENT
  Age: 56 Year
  Sex: Female
  Weight: 55 kg

DRUGS (1)
  1. TECVAYLI [Suspect]
     Active Substance: TECLISTAMAB-CQYV
     Indication: Plasma cell myeloma in remission
     Route: 058
     Dates: start: 20221207, end: 20241030

REACTIONS (1)
  - Neurotoxicity [Not Recovered/Not Resolved]

NARRATIVE: CASE EVENT DATE: 20241118
